FAERS Safety Report 5254772-7 (Version None)
Quarter: 2007Q1

REPORT INFORMATION
  Report Type: 
  Country: None (occurrence: None)
  Receive Date: 20070305
  Receipt Date: 20070227
  Transmission Date: 20070707
  Serious: Yes (Other)
  Sender: FDA-Public Use
  Company Number: US-JNJFOC-20070206441

PATIENT
  Age: 58 Year
  Sex: Female
  Weight: 85.73 kg

DRUGS (4)
  1. TYLENOL (CAPLET) [Suspect]
  2. TYLENOL (CAPLET) [Suspect]
     Indication: PAIN
     Dosage: 1300 MG IN THE MORNING AND ^AT TIMES^ 1300 MG AT NIGHT, FOR A ^WHILE^
  3. LISINOPRIL [Concomitant]
  4. M.V.I. [Concomitant]

REACTIONS (1)
  - HYPERTENSION [None]
